FAERS Safety Report 7319741-1 (Version None)
Quarter: 2011Q1

REPORT INFORMATION
  Report Type: 
  Country: None (occurrence: None)
  Receive Date: 20110228
  Receipt Date: 20100901
  Transmission Date: 20110831
  Serious: No
  Sender: FDA-Public Use
  Company Number: A0878941A

PATIENT
  Age: 17 Year
  Sex: Female

DRUGS (5)
  1. ZOLOFT [Concomitant]
  2. CLARITIN-D [Concomitant]
  3. LAMICTAL [Suspect]
     Indication: ANXIETY
     Dosage: 50MG PER DAY
     Route: 048
  4. CONCERTA [Concomitant]
  5. ANTABUSE [Concomitant]

REACTIONS (1)
  - DRUG SCREEN POSITIVE [None]
